FAERS Safety Report 16765940 (Version 1)
Quarter: 2019Q3

REPORT INFORMATION
  Report Type: Spontaneous
  Country: FR (occurrence: FR)
  Receive Date: 20190903
  Receipt Date: 20190903
  Transmission Date: 20191005
  Serious: Yes (Other)
  Sender: FDA-Public Use
  Company Number: FR-ACCORD-153472

PATIENT
  Age: 29 Year
  Sex: Male
  Weight: 130 kg

DRUGS (1)
  1. OXALIPLATIN. [Suspect]
     Active Substance: OXALIPLATIN
     Indication: COLORECTAL ADENOCARCINOMA
     Route: 042
     Dates: start: 2018

REACTIONS (4)
  - Hyperthermia [Recovered/Resolved]
  - Feeling hot [Recovered/Resolved]
  - Tremor [Recovered/Resolved]
  - Erythema [Recovered/Resolved]

NARRATIVE: CASE EVENT DATE: 2018
